FAERS Safety Report 6336037-5 (Version None)
Quarter: 2009Q3

REPORT INFORMATION
  Report Type: 
  Country: None (occurrence: None)
  Receive Date: 20090828
  Receipt Date: 20090819
  Transmission Date: 20100115
  Serious: Yes (Disabling)
  Sender: FDA-Public Use
  Company Number: GXKR2009GB09358

PATIENT
  Age: 65 Year
  Sex: Female
  Weight: 92 kg

DRUGS (14)
  1. SIMVASTATIN [Suspect]
  2. SITAGLIPTIN (SITAGLIPTIN) [Suspect]
     Indication: DIABETES MELLITUS
     Dosage: 100 MG, ORAL
     Route: 048
     Dates: start: 20080812, end: 20090518
  3. ASPIRIN [Concomitant]
  4. BENDROFLUMETHIAZIDE (BENDROFLUMETHIAZIDE) [Concomitant]
  5. DIPYRIDAMOLE [Concomitant]
  6. ENALAPRIL MALEATE [Concomitant]
  7. LACRI-LUBE (LANOLIN, MINERAL OIL LIGHT, PETROLATUM) [Concomitant]
  8. LANTUS [Concomitant]
  9. METFORMIN HYDROCHLORIDE (METFOMRIN HYDROCHLORIDE) [Concomitant]
  10. OXYTETRACYCLINE [Concomitant]
  11. PRAVASTATIN [Concomitant]
  12. SNO TEARS (POLYVINYL ALCOHOL) [Concomitant]
  13. BUPRENORPHINE HCL [Concomitant]
  14. PRAVASTATIN [Concomitant]

REACTIONS (12)
  - ARTHRALGIA [None]
  - DISCOMFORT [None]
  - INTRAOCULAR PRESSURE DECREASED [None]
  - LACRIMATION DECREASED [None]
  - MACULOPATHY [None]
  - MALAISE [None]
  - MEIBOMIANITIS [None]
  - MYALGIA [None]
  - NAUSEA [None]
  - RETINAL EXUDATES [None]
  - RETINAL HAEMORRHAGE [None]
  - VISION BLURRED [None]
